FAERS Safety Report 10020962 (Version 1)
Quarter: 2014Q1

REPORT INFORMATION
  Report Type: Report from Study
  Country: CA (occurrence: CA)
  Receive Date: 20140319
  Receipt Date: 20140319
  Transmission Date: 20141002
  Serious: Yes (Other)
  Sender: FDA-Public Use
  Company Number: CA-JNJFOC-20140309286

PATIENT
  Age: 30 Year
  Sex: Female
  Weight: 47 kg

DRUGS (1)
  1. REMICADE [Suspect]
     Indication: CROHN^S DISEASE
     Route: 042
     Dates: start: 200611

REACTIONS (2)
  - Abortion spontaneous [Unknown]
  - Exposure during pregnancy [Recovered/Resolved]
